FAERS Safety Report 4311975-3 (Version None)
Quarter: 2004Q1

REPORT INFORMATION
  Report Type: 
  Country: None (occurrence: None)
  Receive Date: 20040305
  Receipt Date: 20030321
  Transmission Date: 20041129
  Serious: No
  Sender: FDA-Public Use
  Company Number: US-GLAXOSMITHKLINE-A0401295A

PATIENT
  Age: 82 Year
  Sex: Male

DRUGS (6)
  1. REQUIP [Suspect]
     Indication: RESTLESS LEGS SYNDROME
     Dosage: .75MG PER DAY
     Route: 048
     Dates: end: 20030525
  2. PAXIL [Concomitant]
  3. MULTIVITAMIN [Concomitant]
  4. TRAZODONE HCL [Concomitant]
  5. HYDROCHLOROTHIAZIDE [Concomitant]
  6. TIAZAC [Concomitant]

REACTIONS (3)
  - DRUG INEFFECTIVE [None]
  - RESTLESS LEGS SYNDROME [None]
  - SOMNOLENCE [None]
